FAERS Safety Report 5716601-4 (Version None)
Quarter: 2008Q2

REPORT INFORMATION
  Report Type: 
  Country: None (occurrence: None)
  Receive Date: 20080424
  Receipt Date: 20080410
  Transmission Date: 20081010
  Serious: Yes (Hospitalization)
  Sender: FDA-Public Use
  Company Number: CA-ELI_LILLY_AND_COMPANY-CA200804002894

PATIENT
  Age: 52 Year
  Sex: Female

DRUGS (8)
  1. FORTEO [Suspect]
     Indication: OSTEOPOROSIS
     Dosage: 20 UG, DAILY (1/D)
     Route: 058
     Dates: start: 20070316
  2. MEDROL [Concomitant]
  3. MICARDIS [Concomitant]
  4. RABEPRAZOLE SODIUM [Concomitant]
  5. SYMBICORT [Concomitant]
  6. VENTOLIN                                /SCH/ [Concomitant]
  7. CALCIUM [Concomitant]
  8. VITAMIN D [Concomitant]

REACTIONS (1)
  - TENDON RUPTURE [None]
